FAERS Safety Report 4591404-5 (Version None)
Quarter: 2005Q1

REPORT INFORMATION
  Report Type: 
  Country: None (occurrence: None)
  Receive Date: 20050225
  Receipt Date: 20050128
  Transmission Date: 20050727
  Serious: Yes (Life-Threatening, Hospitalization)
  Sender: FDA-Public Use
  Company Number: US-BRISTOL-MYERS SQUIBB COMPANY-12842696

PATIENT
  Age: 87 Year
  Sex: Female

DRUGS (8)
  1. TEQUIN [Suspect]
     Indication: PNEUMONIA
     Route: 048
     Dates: start: 20030204, end: 20030210
  2. DYAZIDE [Concomitant]
  3. COZAAR [Concomitant]
  4. KLONOPIN [Concomitant]
  5. GLUCOTROL [Concomitant]
  6. PROTONIX [Concomitant]
  7. ZOLOFT [Concomitant]
  8. NORVASC [Concomitant]

REACTIONS (1)
  - HYPERGLYCAEMIA [None]
